FAERS Safety Report 19435976 (Version 1)
Quarter: 2021Q2

REPORT INFORMATION
  Report Type: Spontaneous
  Country: US (occurrence: US)
  Receive Date: 20210618
  Receipt Date: 20210618
  Transmission Date: 20210717
  Serious: Yes (Other)
  Sender: FDA-Public Use
  Company Number: US-ACCORD-228470

PATIENT
  Age: 68 Year
  Sex: Female

DRUGS (1)
  1. MITOMYCIN. [Suspect]
     Active Substance: MITOMYCIN
     Indication: OPEN ANGLE GLAUCOMA
     Dosage: SUBCONJUNCTIVAL 0.4 MG/ML

REACTIONS (4)
  - Iridocyclitis [Unknown]
  - Anterior chamber angle neovascularisation [Recovered/Resolved]
  - Off label use [Unknown]
  - Hyphaema [Unknown]
